FAERS Safety Report 5763819-0 (Version None)
Quarter: 2008Q2

REPORT INFORMATION
  Report Type: 
  Country: None (occurrence: None)
  Receive Date: 20080602
  Receipt Date: 20070507
  Transmission Date: 20081010
  Serious: Yes (Hospitalization)
  Sender: FDA-Public Use
  Company Number: GP050507

PATIENT
  Sex: Male

DRUGS (4)
  1. GRIS-PEG [Suspect]
     Indication: FUNGAL SKIN INFECTION
     Dosage: QD - PO
     Route: 047
     Dates: start: 20070423, end: 20070423
  2. TAMSULOSIN HCL [Concomitant]
  3. UNSPECIFIED THYROID SUPPLEMENT [Concomitant]
  4. GOUT MEDICATION [Concomitant]

REACTIONS (3)
  - DIZZINESS [None]
  - HYPERTENSION [None]
  - RASH [None]
